FAERS Safety Report 7154674 (Version 17)
Quarter: 2014Q1

REPORT INFORMATION
  Report Type: Spontaneous
  Country: US (occurrence: US)
  Receive Date: 20091021
  Receipt Date: 20140121
  Transmission Date: 20141002
  Serious: Yes (Death, Other)
  Sender: FDA-Public Use
  Company Number: PHEH2009US13601

PATIENT
  Age: 82 Year
  Sex: Female

DRUGS (7)
  1. ZOMETA [Suspect]
     Indication: PLASMA CELL MYELOMA
     Dates: end: 20080905
  2. NEURONTIN [Concomitant]
  3. ENALAPRIL [Concomitant]
  4. FENTANYL [Concomitant]
  5. NORVASC [Concomitant]
  6. VELCADE [Concomitant]
  7. OXYCODONE [Concomitant]

REACTIONS (63)
  - Death [Fatal]
  - Osteonecrosis of jaw [Unknown]
  - Injury [Unknown]
  - Anhedonia [Unknown]
  - Osteomyelitis [Unknown]
  - Cellulitis [Unknown]
  - Tooth abscess [Unknown]
  - Bone lesion [Unknown]
  - Gingivitis [Unknown]
  - Pain [Unknown]
  - Anxiety [Unknown]
  - Disability [Unknown]
  - Osteitis [Unknown]
  - Infection [Unknown]
  - Exposed bone in jaw [Unknown]
  - Inflammatory bowel disease [Unknown]
  - Intestinal ischaemia [Unknown]
  - Diverticulum [Unknown]
  - Rectal haemorrhage [Unknown]
  - Anaemia [Unknown]
  - Restless legs syndrome [Unknown]
  - Fall [Unknown]
  - Depression [Unknown]
  - Exostosis [Unknown]
  - Aortic calcification [Unknown]
  - Deep vein thrombosis [Unknown]
  - Neuropathy peripheral [Recovering/Resolving]
  - Peroneal nerve palsy [Unknown]
  - Gastrooesophageal reflux disease [Unknown]
  - Lymphatic system neoplasm [Unknown]
  - Haematopoietic neoplasm [Unknown]
  - Pain in extremity [Unknown]
  - Anal fissure [Unknown]
  - Urinary tract infection [Unknown]
  - Herpes zoster [Unknown]
  - Dyspnoea [Unknown]
  - Cataract [Unknown]
  - Constipation [Unknown]
  - Rib fracture [Unknown]
  - Lordosis [Unknown]
  - Osteopenia [Unknown]
  - Osteoarthritis [Unknown]
  - Bone cancer [Unknown]
  - Temporomandibular joint syndrome [Unknown]
  - Arteriovenous malformation [Unknown]
  - Pyrexia [Unknown]
  - Facial pain [Unknown]
  - Swelling face [Unknown]
  - Chest pain [Unknown]
  - Pulmonary oedema [Unknown]
  - Cardiac failure congestive [Unknown]
  - Sinus tachycardia [Unknown]
  - Pain in jaw [Unknown]
  - Gait disturbance [Unknown]
  - Arthralgia [Unknown]
  - Joint injury [Unknown]
  - Foot fracture [Unknown]
  - Spinal osteoarthritis [Unknown]
  - Intervertebral disc space narrowing [Unknown]
  - Neuralgia [Unknown]
  - Osteolysis [Unknown]
  - Kyphosis [Unknown]
  - Salivary hypersecretion [Unknown]
